FAERS Safety Report 20128450 (Version 1)
Quarter: 2021Q4

REPORT INFORMATION
  Report Type: Spontaneous
  Country: GB (occurrence: GB)
  Receive Date: 20211130
  Receipt Date: 20211130
  Transmission Date: 20220303
  Serious: Yes (Hospitalization, Other)
  Sender: FDA-Public Use
  Company Number: None

PATIENT
  Age: 49 Year
  Sex: Male

DRUGS (10)
  1. LINEZOLID [Suspect]
     Active Substance: LINEZOLID
     Indication: Brain abscess
     Dosage: 600 MILLIGRAM, BID
     Route: 048
     Dates: start: 201811
  2. LINEZOLID [Suspect]
     Active Substance: LINEZOLID
     Indication: Cerebral nocardiosis
  3. IMIPENEM [Suspect]
     Active Substance: IMIPENEM
     Indication: Brain abscess
     Dosage: 500 MILLIGRAM, QD
     Route: 042
     Dates: start: 201811, end: 2018
  4. IMIPENEM [Suspect]
     Active Substance: IMIPENEM
     Indication: Cerebral nocardiosis
  5. SULFAMETHOXAZOLE\TRIMETHOPRIM [Suspect]
     Active Substance: SULFAMETHOXAZOLE\TRIMETHOPRIM
     Indication: Cerebral nocardiosis
     Dosage: UNK
     Route: 042
     Dates: start: 201811, end: 2018
  6. SULFAMETHOXAZOLE\TRIMETHOPRIM [Suspect]
     Active Substance: SULFAMETHOXAZOLE\TRIMETHOPRIM
     Indication: Brain abscess
  7. MOXIFLOXACIN [Concomitant]
     Active Substance: MOXIFLOXACIN
     Indication: Brain abscess
     Dosage: 800 MILLIGRAM, ONCE
     Route: 048
     Dates: start: 2018
  8. MOXIFLOXACIN [Concomitant]
     Active Substance: MOXIFLOXACIN
     Indication: Cerebral nocardiosis
  9. MEROPENEM [Concomitant]
     Active Substance: MEROPENEM
     Indication: Cerebral nocardiosis
     Dosage: 2 GRAM, TID
     Route: 042
     Dates: start: 2018
  10. MEROPENEM [Concomitant]
     Active Substance: MEROPENEM
     Indication: Brain abscess

REACTIONS (3)
  - Haemoglobin decreased [Unknown]
  - Tendonitis [Unknown]
  - Transaminases increased [Recovered/Resolved]

NARRATIVE: CASE EVENT DATE: 20180101
